FAERS Safety Report 5192907-5 (Version None)
Quarter: 2006Q4

REPORT INFORMATION
  Report Type: 
  Country: None (occurrence: None)
  Receive Date: 20061228
  Receipt Date: 20060213
  Transmission Date: 20070319
  Serious: No
  Sender: FDA-Public Use
  Company Number: US-GLAXOSMITHKLINE-A0593495A

PATIENT
  Age: 78 Year
  Sex: Female

DRUGS (1)
  1. FLONASE [Suspect]
     Dosage: 1SPR AT NIGHT
     Route: 045
     Dates: start: 20050801

REACTIONS (2)
  - EPISTAXIS [None]
  - NASAL DRYNESS [None]
